FAERS Safety Report 17438646 (Version 1)
Quarter: 2020Q1

REPORT INFORMATION
  Report Type: Spontaneous
  Country: US (occurrence: US)
  Receive Date: 20200220
  Receipt Date: 20200220
  Transmission Date: 20200409
  Serious: No
  Sender: FDA-Public Use
  Company Number: US-ASTRAZENECA-2020SE12270

PATIENT
  Age: 29706 Day
  Sex: Male
  Weight: 81.6 kg

DRUGS (1)
  1. IMFINZI [Suspect]
     Active Substance: DURVALUMAB
     Indication: NON-SMALL CELL LUNG CANCER
     Dosage: EVERY TWO WEEKS
     Route: 042
     Dates: start: 201906

REACTIONS (4)
  - Fatigue [Unknown]
  - Psoriatic arthropathy [Unknown]
  - Sinus congestion [Unknown]
  - Appetite disorder [Unknown]

NARRATIVE: CASE EVENT DATE: 20200119
